FAERS Safety Report 5723496-1 (Version None)
Quarter: 2008Q2

REPORT INFORMATION
  Report Type: 
  Country: None (occurrence: None)
  Receive Date: 20080425
  Receipt Date: 20080415
  Transmission Date: 20081010
  Serious: No
  Sender: FDA-Public Use
  Company Number: 2008-175853-NL

PATIENT
  Age: 57 Year
  Sex: Male

DRUGS (1)
  1. MIRTAZAPINE [Suspect]
     Indication: DEPRESSION
     Dosage: MG/45 MG QD ORAL
     Route: 048
     Dates: start: 19980101, end: 20040101

REACTIONS (1)
  - BUNDLE BRANCH BLOCK LEFT [None]
